FAERS Safety Report 13039778 (Version 1)
Quarter: 2016Q4

REPORT INFORMATION
  Report Type: Spontaneous
  Country: US (occurrence: US)
  Receive Date: 20161219
  Receipt Date: 20161219
  Transmission Date: 20170207
  Serious: No
  Sender: FDA-Public Use
  Company Number: US-ACTELION-A-US2016-140448

PATIENT
  Age: 70 Year
  Sex: Female

DRUGS (26)
  1. UPTRAVI [Suspect]
     Active Substance: SELEXIPAG
     Dosage: 400 MCG, BID
     Route: 048
  2. AMBRISENTAN [Suspect]
     Active Substance: AMBRISENTAN
     Indication: PULMONARY HYPERTENSION
     Dosage: 10 MG, QD
     Route: 048
     Dates: start: 20150717
  3. DIGOXIN. [Concomitant]
     Active Substance: DIGOXIN
  4. NEXIUM [Concomitant]
     Active Substance: ESOMEPRAZOLE MAGNESIUM
  5. ADCIRCA [Concomitant]
     Active Substance: TADALAFIL
  6. GUAIFENESIN AND DEXTROMETORPHAN HYDROBROMIDE [Concomitant]
  7. MACROGOL [Concomitant]
     Active Substance: POLYETHYLENE GLYCOLS
  8. POLYETHYLENE GLYCOL [Concomitant]
     Active Substance: POLYETHYLENE GLYCOLS
  9. CALCIUM PLUS D3 [Concomitant]
  10. POTASSIUM [Concomitant]
     Active Substance: POTASSIUM
  11. EVISTA [Concomitant]
     Active Substance: RALOXIFENE HYDROCHLORIDE
  12. SPIRONOLACTONE. [Concomitant]
     Active Substance: SPIRONOLACTONE
  13. UPTRAVI [Suspect]
     Active Substance: SELEXIPAG
     Dosage: 1200 MCG, BID
     Route: 048
     Dates: start: 20161104
  14. COUMADIN [Concomitant]
     Active Substance: WARFARIN SODIUM
  15. CYANOCOBALAMIN. [Concomitant]
     Active Substance: CYANOCOBALAMIN
  16. BUMEX [Concomitant]
     Active Substance: BUMETANIDE
  17. MAGNESIUM [Concomitant]
     Active Substance: MAGNESIUM
  18. CALCITONIN [Concomitant]
     Active Substance: CALCITONIN
  19. UPTRAVI [Suspect]
     Active Substance: SELEXIPAG
     Dosage: 1000 MCG, BID
     Route: 048
     Dates: start: 20161105
  20. AMIODARONE [Concomitant]
     Active Substance: AMIODARONE
  21. IMURAN [Concomitant]
     Active Substance: AZATHIOPRINE
  22. MULTIVITAMINS W/MINERALS [Concomitant]
     Active Substance: MINERALS\VITAMINS
  23. LACTOBACILLUS ACIDOPHILUS [Concomitant]
     Active Substance: LACTOBACILLUS ACIDOPHILUS
  24. COLCHICINE. [Concomitant]
     Active Substance: COLCHICINE
  25. PREDNISONE. [Concomitant]
     Active Substance: PREDNISONE
  26. UPTRAVI [Suspect]
     Active Substance: SELEXIPAG
     Indication: PULMONARY HYPERTENSION
     Dosage: 800 MCG, UNK
     Route: 048
     Dates: start: 20160726

REACTIONS (2)
  - Headache [Unknown]
  - Pain in jaw [Unknown]

NARRATIVE: CASE EVENT DATE: 20160726
